FAERS Safety Report 23867571 (Version 1)
Quarter: 2024Q2

REPORT INFORMATION
  Report Type: Other
  Country: TR (occurrence: TR)
  Receive Date: 20240517
  Receipt Date: 20240517
  Transmission Date: 20240715
  Serious: Yes (Hospitalization, Other)
  Sender: FDA-Public Use
  Company Number: TR-Renata Limited-2157131

PATIENT
  Age: 09 Year
  Sex: Male

DRUGS (2)
  1. RISPERIDONE [Suspect]
     Active Substance: RISPERIDONE
     Indication: Autism spectrum disorder
     Route: 048
  2. METHYLPHENIDATE [Concomitant]
     Active Substance: METHYLPHENIDATE
     Route: 065

REACTIONS (10)
  - Blood pressure increased [Recovered/Resolved]
  - Accidental overdose [Unknown]
  - Lethargy [Recovered/Resolved]
  - Heart rate increased [Recovered/Resolved]
  - Dysphagia [Recovered/Resolved]
  - Epistaxis [Recovered/Resolved]
  - Dystonia [Recovered/Resolved]
  - Toxicity to various agents [Recovered/Resolved]
  - Cogwheel rigidity [Recovered/Resolved]
  - Respiratory rate increased [Recovered/Resolved]
